FAERS Safety Report 5192797-0 (Version None)
Quarter: 2006Q4

REPORT INFORMATION
  Report Type: 
  Country: None (occurrence: None)
  Receive Date: 20061228
  Receipt Date: 20051102
  Transmission Date: 20070319
  Serious: No
  Sender: FDA-Public Use
  Company Number: US-GLAXOSMITHKLINE-A0580521A

PATIENT
  Age: 15 Year
  Sex: Male
  Weight: 49.1 kg

DRUGS (4)
  1. FLONASE [Suspect]
     Dosage: 2SPR PER DAY
     Route: 045
     Dates: start: 20020627, end: 20050801
  2. ZYRTEC [Concomitant]
     Dosage: 10MG PER DAY
     Route: 048
     Dates: start: 20020627
  3. ADVAIR DISKUS 100/50 [Concomitant]
     Dosage: 1PUFF TWICE PER DAY
     Route: 055
  4. ALLERGY SHOT [Concomitant]
     Route: 065

REACTIONS (1)
  - EPISTAXIS [None]
